FAERS Safety Report 9815787 (Version 3)
Quarter: 2014Q1

REPORT INFORMATION
  Report Type: Spontaneous
  Country: US (occurrence: None)
  Receive Date: 20140110
  Receipt Date: 20140205
  Transmission Date: 20141002
  Serious: Yes (Other)
  Sender: FDA-Public Use
  Company Number: ADR-2014-00038

PATIENT
  Age: 54 Year
  Sex: Male

DRUGS (3)
  1. BACLOFEN [Suspect]
     Indication: PAIN
     Dosage: /DAY
  2. HYDROMORPHONE [Suspect]
     Indication: PAIN
     Dosage: /DAY
  3. NAROPIN [Suspect]
     Dosage: /AYT

REACTIONS (7)
  - Somnolence [None]
  - Flushing [None]
  - Hypoaesthesia [None]
  - Erythema [None]
  - Overdose [None]
  - Hypoaesthesia [None]
  - Overdose [None]
